FAERS Safety Report 17604573 (Version 1)
Quarter: 2020Q1

REPORT INFORMATION
  Report Type: Spontaneous
  Country: US (occurrence: US)
  Receive Date: 20200331
  Receipt Date: 20200331
  Transmission Date: 20200409
  Serious: No
  Sender: FDA-Public Use
  Company Number: US-PFIZER INC-2020126440

PATIENT
  Age: 62 Year
  Sex: Male
  Weight: 112.49 kg

DRUGS (2)
  1. PREGABALIN. [Suspect]
     Active Substance: PREGABALIN
     Indication: NEURALGIA
     Dosage: 200 MG, 2X/DAY
     Route: 048
     Dates: start: 201911, end: 202001
  2. LYRICA [Suspect]
     Active Substance: PREGABALIN
     Dosage: UNK

REACTIONS (2)
  - Hyperphagia [Unknown]
  - Hunger [Unknown]

NARRATIVE: CASE EVENT DATE: 202001
